FAERS Safety Report 15148820 (Version 3)
Quarter: 2018Q3

REPORT INFORMATION
  Report Type: Spontaneous
  Country: US (occurrence: US)
  Receive Date: 20180716
  Receipt Date: 20180906
  Transmission Date: 20181010
  Serious: Yes (Other)
  Sender: FDA-Public Use
  Company Number: US-UNITED THERAPEUTICS-UNT-2018-009669

PATIENT
  Sex: Female
  Weight: 81.63 kg

DRUGS (9)
  1. ORENITRAM [Suspect]
     Active Substance: TREPROSTINIL
     Indication: PULMONARY ARTERIAL HYPERTENSION
     Dosage: 12 MG, TID
     Route: 048
     Dates: start: 20180219
  2. ORENITRAM [Suspect]
     Active Substance: TREPROSTINIL
     Indication: PULMONARY ARTERIAL HYPERTENSION
     Dosage: 12 MG, TID
     Route: 048
     Dates: start: 20180219
  3. ORENITRAM [Suspect]
     Active Substance: TREPROSTINIL
     Dosage: 11 MG, TID
     Route: 048
  4. ORENITRAM [Suspect]
     Active Substance: TREPROSTINIL
     Dosage: UNK
     Route: 048
  5. ORENITRAM [Suspect]
     Active Substance: TREPROSTINIL
     Dosage: UNK
     Route: 048
  6. ORENITRAM [Suspect]
     Active Substance: TREPROSTINIL
     Dosage: UNK
     Route: 048
  7. DILTIAZEM. [Concomitant]
     Active Substance: DILTIAZEM
     Indication: PRODUCT USED FOR UNKNOWN INDICATION
     Route: 065
  8. ORENITRAM [Suspect]
     Active Substance: TREPROSTINIL
     Dosage: UNK
     Route: 048
  9. ORENITRAM [Suspect]
     Active Substance: TREPROSTINIL
     Dosage: 11 MG, TID
     Route: 048

REACTIONS (8)
  - Dyspnoea exertional [Unknown]
  - Hypopnoea [Unknown]
  - Dyskinesia [Unknown]
  - Nausea [Recovering/Resolving]
  - Insomnia [Unknown]
  - Weight fluctuation [Unknown]
  - Pain in extremity [Unknown]
  - Fall [Recovered/Resolved]

NARRATIVE: CASE EVENT DATE: 2018
